FAERS Safety Report 10688490 (Version 1)
Quarter: 2015Q1

REPORT INFORMATION
  Report Type: Spontaneous
  Country: US (occurrence: US)
  Receive Date: 20150102
  Receipt Date: 20150102
  Transmission Date: 20150720
  Serious: No
  Sender: FDA-Public Use
  Company Number: US-GLAXOSMITHKLINE-US2014024599

PATIENT
  Age: 30 Year
  Sex: Male

DRUGS (1)
  1. NICODERM CQ [Suspect]
     Active Substance: NICOTINE
     Indication: SMOKING CESSATION THERAPY
     Dosage: UNK
     Route: 062
     Dates: start: 2007

REACTIONS (4)
  - Application site erythema [Recovered/Resolved]
  - Application site reaction [Recovered/Resolved]
  - Hypersensitivity [Recovered/Resolved]
  - Application site swelling [Recovered/Resolved]

NARRATIVE: CASE EVENT DATE: 2007
